FAERS Safety Report 5309796-8 (Version None)
Quarter: 2007Q2

REPORT INFORMATION
  Report Type: 
  Country: None (occurrence: None)
  Receive Date: 20070427
  Receipt Date: 20060425
  Transmission Date: 20071010
  Serious: No
  Sender: FDA-Public Use
  Company Number: US-GLAXOSMITHKLINE-A0603230A

PATIENT
  Age: 13 Year
  Sex: Female

DRUGS (5)
  1. ZOFRAN [Suspect]
     Indication: CYCLIC VOMITING SYNDROME
     Dosage: 16MG AS REQUIRED
     Route: 048
  2. ELAVIL [Concomitant]
  3. VITAMIN CAP [Concomitant]
  4. CALCIUM CHLORIDE [Concomitant]
  5. MAGNESIUM SULFATE [Concomitant]

REACTIONS (1)
  - PULSE ABNORMAL [None]
